FAERS Safety Report 17543852 (Version 1)
Quarter: 2020Q1

REPORT INFORMATION
  Report Type: Spontaneous
  Country: NL (occurrence: NL)
  Receive Date: 20200316
  Receipt Date: 20200316
  Transmission Date: 20200409
  Serious: Yes (Other)
  Sender: FDA-Public Use
  Company Number: NL-AUROBINDO-AUR-APL-2020-012554

PATIENT
  Age: 65 Year
  Sex: Female
  Weight: 90 kg

DRUGS (2)
  1. LISINOPRIL/HYDROCHLOORTHIAZIDE 20/12.5 MG TABLETS [Suspect]
     Active Substance: HYDROCHLOROTHIAZIDE\LISINOPRIL
     Indication: FLUID RETENTION
  2. LISINOPRIL/HYDROCHLOORTHIAZIDE 20/12.5 MG TABLETS [Suspect]
     Active Substance: HYDROCHLOROTHIAZIDE\LISINOPRIL
     Indication: HYPERTENSION
     Dosage: 1 DOSAGE FORM, ONCE A DAY (TABLET, 20/12,5 MG (MILLIGRAM), 1 TIME A DAY, 1)
     Route: 065
     Dates: start: 201903, end: 20190909

REACTIONS (4)
  - Pharyngeal swelling [Recovered/Resolved]
  - Choking [Recovered/Resolved]
  - Cough [Recovered/Resolved]
  - Salivary gland disorder [Recovered/Resolved]

NARRATIVE: CASE EVENT DATE: 20190322
